FAERS Safety Report 22161386 (Version 1)
Quarter: 2023Q1

REPORT INFORMATION
  Report Type: Report from Study
  Country: US (occurrence: US)
  Receive Date: 20230331
  Receipt Date: 20230331
  Transmission Date: 20230418
  Serious: Yes (Hospitalization)
  Sender: FDA-Public Use
  Company Number: US-PFIZER INC-PV202300039172

PATIENT
  Age: 52 Year
  Sex: Female
  Weight: 101.59 kg

DRUGS (1)
  1. BAZEDOXIFENE ACETATE\ESTROGENS, CONJUGATED [Suspect]
     Active Substance: BAZEDOXIFENE ACETATE\ESTROGENS, CONJUGATED
     Dosage: UNK, DAILY
     Route: 048
     Dates: start: 20220701, end: 20230224

REACTIONS (3)
  - Pulmonary embolism [Recovered/Resolved]
  - Cor pulmonale [Recovered/Resolved]
  - Acute myocardial infarction [Recovered/Resolved]

NARRATIVE: CASE EVENT DATE: 20230224
